FAERS Safety Report 9384752 (Version 1)
Quarter: 2013Q3

REPORT INFORMATION
  Report Type: Spontaneous
  Country: GB (occurrence: None)
  Receive Date: 20130701
  Receipt Date: 20130701
  Transmission Date: 20140515
  Serious: Yes (Hospitalization)
  Sender: FDA-Public Use
  Company Number: AUR-APL-2013-05217

PATIENT
  Age: 66 Year
  Sex: Female

DRUGS (6)
  1. CITALOPRAM (CITALOPRAM) [Suspect]
     Indication: DEPRESSION
     Route: 048
     Dates: start: 20130523, end: 20130601
  2. BISACODYL (BISACODYL) [Concomitant]
  3. DOCUSATE (DOCUSATE) [Concomitant]
  4. GLYCEROL (GLYCEROL) [Concomitant]
  5. LEVOTHYROXINE (LEVOTHYROXINE) [Concomitant]
  6. PHENYTOIN (PHENYTOIN) [Concomitant]

REACTIONS (2)
  - Convulsion [None]
  - Status epilepticus [None]
